FAERS Safety Report 4495946-2 (Version None)
Quarter: 2004Q4

REPORT INFORMATION
  Report Type: 
  Country: None (occurrence: None)
  Receive Date: 20041108
  Receipt Date: 20041028
  Transmission Date: 20050328
  Serious: Yes (Hospitalization)
  Sender: FDA-Public Use
  Company Number: FR-JNJFOC-20041008398

PATIENT
  Age: 63 Year
  Sex: Female

DRUGS (9)
  1. TOPALGIC [Suspect]
     Indication: DRUG USE FOR UNKNOWN INDICATION
     Route: 049
  2. VEINAMITOL [Suspect]
     Indication: DRUG USE FOR UNKNOWN INDICATION
     Route: 049
  3. STILNOX [Suspect]
     Indication: DRUG USE FOR UNKNOWN INDICATION
     Route: 049
  4. APROVEL [Suspect]
     Indication: DRUG USE FOR UNKNOWN INDICATION
     Route: 049
  5. LAMALINE [Suspect]
     Route: 049
  6. LAMALINE [Suspect]
     Route: 049
  7. LAMALINE [Suspect]
     Route: 049
  8. LAMALINE [Suspect]
     Indication: DRUG USE FOR UNKNOWN INDICATION
     Route: 049
  9. NEURONTIN [Suspect]
     Indication: DRUG USE FOR UNKNOWN INDICATION
     Route: 049

REACTIONS (5)
  - DRUG INTERACTION [None]
  - EPSTEIN-BARR VIRUS ANTIBODY POSITIVE [None]
  - LABORATORY TEST ABNORMAL [None]
  - THROMBOCYTOPENIA [None]
  - THROMBOCYTOPENIC PURPURA [None]
